FAERS Safety Report 6291378-5 (Version None)
Quarter: 2009Q3

REPORT INFORMATION
  Report Type: 
  Country: None (occurrence: None)
  Receive Date: 20090729
  Receipt Date: 20090729
  Transmission Date: 20100115
  Serious: Yes (Hospitalization)
  Sender: FDA-Public Use
  Company Number: None

PATIENT
  Sex: Male
  Weight: 48.5349 kg

DRUGS (10)
  1. ALIMTA [Suspect]
     Indication: HEAD AND NECK CANCER
     Dosage: 500 MG/M2 IV
     Route: 042
     Dates: start: 20090211, end: 20090708
  2. AVASTIN [Suspect]
     Indication: HEAD AND NECK CANCER
     Dosage: 15 MG/KG IV
     Route: 042
     Dates: start: 20090211, end: 20090708
  3. FOLIC ACID [Concomitant]
  4. VIT B12 [Concomitant]
  5. FENTANYL PATCH, OXYCODONE [Concomitant]
  6. ZANTAC [Concomitant]
  7. PROTONIX [Concomitant]
  8. COMPAZINE [Concomitant]
  9. ZOFRAN [Concomitant]
  10. DECADRON [Concomitant]

REACTIONS (4)
  - GASTROOESOPHAGEAL REFLUX DISEASE [None]
  - NAUSEA [None]
  - PNEUMONIA ASPIRATION [None]
  - WEIGHT DECREASED [None]
